FAERS Safety Report 18601015 (Version 6)
Quarter: 2023Q1

REPORT INFORMATION
  Report Type: Report from Study
  Country: ES (occurrence: ES)
  Receive Date: 20201210
  Receipt Date: 20230214
  Transmission Date: 20230418
  Serious: Yes (Life-Threatening, Hospitalization)
  Sender: FDA-Public Use
  Company Number: ES-ALXN-A202017998

PATIENT
  Age: 43 Year
  Sex: Female
  Weight: 77 kg

DRUGS (5)
  1. RAVULIZUMAB [Suspect]
     Active Substance: RAVULIZUMAB
     Indication: Neuromyelitis optica spectrum disorder
     Dosage: 2700 MG, SINGLE
     Route: 042
     Dates: start: 20201113
  2. RAVULIZUMAB [Suspect]
     Active Substance: RAVULIZUMAB
     Dosage: 3300 MG, SINGLE
     Route: 042
     Dates: start: 20201126
  3. METOCLOPRAMIDE [Concomitant]
     Active Substance: METOCLOPRAMIDE
     Indication: Prophylaxis of nausea and vomiting
     Dosage: 10 MG, TID
     Route: 042
     Dates: start: 20201203, end: 20201211
  4. ACETAMINOPHEN [Concomitant]
     Active Substance: ACETAMINOPHEN
     Indication: Headache
     Dosage: 1 G, PRN
     Route: 042
     Dates: start: 20201204, end: 20201218
  5. ACETAMINOPHEN [Concomitant]
     Active Substance: ACETAMINOPHEN
     Indication: Prophylaxis
     Dosage: 1 G, SINGLE
     Route: 042
     Dates: start: 20201203, end: 20201203

REACTIONS (1)
  - Encephalitis meningococcal [Recovered/Resolved]

NARRATIVE: CASE EVENT DATE: 20201204
